FAERS Safety Report 25795274 (Version 1)
Quarter: 2025Q3

REPORT INFORMATION
  Report Type: Spontaneous
  Country: US (occurrence: US)
  Receive Date: 20250912
  Receipt Date: 20250912
  Transmission Date: 20251021
  Serious: No
  Sender: AVERITAS
  Company Number: US-GRUNENTHAL-2025-113937

PATIENT
  Sex: Male

DRUGS (1)
  1. QUTENZA [Suspect]
     Active Substance: CAPSAICIN
     Indication: Diabetic neuropathy
     Route: 061
     Dates: start: 20250619, end: 20250619

REACTIONS (3)
  - Feeling abnormal [Recovering/Resolving]
  - Hypoaesthesia [Recovering/Resolving]
  - Burning sensation [Recovering/Resolving]
